FAERS Safety Report 6397225-5 (Version None)
Quarter: 2009Q3

REPORT INFORMATION
  Report Type: 
  Country: None (occurrence: None)
  Receive Date: 20090923
  Receipt Date: 20090909
  Transmission Date: 20100115
  Serious: Yes (Hospitalization)
  Sender: FDA-Public Use
  Company Number: 20090909CINRY1120

PATIENT
  Age: 54 Year
  Sex: Female
  Weight: 95.2554 kg

DRUGS (12)
  1. CINRYZE [Suspect]
     Indication: HEREDITARY ANGIOEDEMA
     Dosage: 1000 UNIT, 2 IN 1 WK), INTRAVENOUS
     Route: 042
     Dates: start: 20090301
  2. CINRYZE [Suspect]
     Indication: PROPHYLAXIS
     Dosage: 1000 UNIT, 2 IN 1 WK), INTRAVENOUS
     Route: 042
     Dates: start: 20090301
  3. ASPIRIN [Concomitant]
  4. HUMULIN LANTUS (INSULIN HUMAN (INJECTION) [Concomitant]
  5. BYEATTE (DRUG USED IN DIABETES) [Concomitant]
  6. OSTEO-BI-FLEX (CHONDROITAN SODIUM SULFATE W/GLUCOSAMINE HCL) [Concomitant]
  7. SYNTHROID [Concomitant]
  8. BENICAR [Concomitant]
  9. SIMVASTATIN [Concomitant]
  10. PRILOSEC [Concomitant]
  11. ARIMAX [Concomitant]
  12. ACTINAL (CYPROHEPTADINE HYDROCHLORIDE) [Concomitant]

REACTIONS (13)
  - AMNESIA [None]
  - BACK PAIN [None]
  - BACTERIAL INFECTION [None]
  - BLOOD CULTURE POSITIVE [None]
  - BLOOD PRESSURE DECREASED [None]
  - BODY TEMPERATURE INCREASED [None]
  - CHILLS [None]
  - CONFUSIONAL STATE [None]
  - ESCHERICHIA INFECTION [None]
  - HEART RATE INCREASED [None]
  - HEREDITARY ANGIOEDEMA [None]
  - LABORATORY TEST INTERFERENCE [None]
  - TREMOR [None]
